FAERS Safety Report 5728250-2 (Version None)
Quarter: 2008Q2

REPORT INFORMATION
  Report Type: 
  Country: None (occurrence: None)
  Receive Date: 20080506
  Receipt Date: 20080430
  Transmission Date: 20081010
  Serious: Yes (Death, Hospitalization)
  Sender: FDA-Public Use
  Company Number: US-JNJFOC-20070903953

PATIENT
  Sex: Female
  Weight: 108.86 kg

DRUGS (1)
  1. DOXORUBICIN HCL [Suspect]
     Indication: NEOPLASM MALIGNANT
     Route: 042

REACTIONS (4)
  - ANAEMIA [None]
  - CARDIAC FAILURE CONGESTIVE [None]
  - DEATH [None]
  - TACHYCARDIA [None]
